FAERS Safety Report 19182698 (Version 1)
Quarter: 2021Q2

REPORT INFORMATION
  Report Type: Spontaneous
  Country: DE (occurrence: DE)
  Receive Date: 20210427
  Receipt Date: 20210427
  Transmission Date: 20210717
  Serious: Yes (Death, Life-Threatening, Hospitalization, Other)
  Sender: FDA-Public Use
  Company Number: DE-AUROBINDO-AUR-APL-2017-07964

PATIENT
  Age: 42 Year
  Sex: Female

DRUGS (2)
  1. CITALOPRAM FILM?COATED TABLET [Suspect]
     Active Substance: CITALOPRAM HYDROBROMIDE
     Indication: PRODUCT USED FOR UNKNOWN INDICATION
     Dosage: 1.2 GRAM
     Route: 065
  2. MOCLOBEMIDE [Suspect]
     Active Substance: MOCLOBEMIDE
     Indication: PRODUCT USED FOR UNKNOWN INDICATION
     Dosage: 6 GRAM (20 TABLETS 300 MG)
     Route: 065

REACTIONS (17)
  - Serotonin syndrome [Fatal]
  - Somnolence [Unknown]
  - Disseminated intravascular coagulation [Unknown]
  - Nausea [Unknown]
  - Haematoma [Unknown]
  - Mouth haemorrhage [Unknown]
  - Seizure [Recovered/Resolved]
  - Vomiting [Unknown]
  - Hypertonia [Unknown]
  - Epistaxis [Unknown]
  - Overdose [Unknown]
  - Suicide attempt [Unknown]
  - Disorientation [Unknown]
  - Sinus tachycardia [Unknown]
  - Hyperhidrosis [Unknown]
  - Trismus [Unknown]
  - Mydriasis [Unknown]
